FAERS Safety Report 21155751 (Version 1)
Quarter: 2022Q3

REPORT INFORMATION
  Report Type: Spontaneous
  Country: GB (occurrence: GB)
  Receive Date: 20220801
  Receipt Date: 20220801
  Transmission Date: 20221027
  Serious: Yes (Other)
  Sender: FDA-Public Use
  Company Number: GB-ANIPHARMA-2022-UK-000184

PATIENT
  Sex: Female

DRUGS (1)
  1. ANASTROZOLE [Suspect]
     Active Substance: ANASTROZOLE
     Indication: Prophylaxis
     Route: 065
     Dates: start: 202108

REACTIONS (5)
  - Hallucination [Unknown]
  - Hot flush [Unknown]
  - Arthralgia [Unknown]
  - Nausea [Recovered/Resolved]
  - Nightmare [Unknown]
